FAERS Safety Report 12169271 (Version 2)
Quarter: 2016Q2

REPORT INFORMATION
  Report Type: Spontaneous
  Country: CH (occurrence: FR)
  Receive Date: 20160310
  Receipt Date: 20160525
  Transmission Date: 20160815
  Serious: Yes (Death)
  Sender: FDA-Public Use
  Company Number: CH-LPDUSPRD-20160206

PATIENT
  Age: 26 Year
  Sex: Female

DRUGS (10)
  1. OXYNORM [Concomitant]
     Active Substance: OXYCODONE HYDROCHLORIDE
     Dosage: DOSE NOT PROVIDED
     Route: 065
  2. LAROXYL [Concomitant]
     Active Substance: AMITRIPTYLINE
     Dosage: DOSE NOT PROVIDED
     Route: 065
  3. FERINJECT [Suspect]
     Active Substance: FERRIC CARBOXYMALTOSE
     Dosage: 500 MG, 1 IN 1 TOTAL
     Route: 042
     Dates: start: 20160204, end: 20160204
  4. LANSOPRAZOLE. [Concomitant]
     Active Substance: LANSOPRAZOLE
     Dosage: DOSE NOT PROVIDED
     Route: 065
  5. DOLIPRANE [Concomitant]
     Active Substance: ACETAMINOPHEN
     Dosage: DOSE NOT PROVIDED
     Route: 065
  6. SOLU-PRED 20 [Concomitant]
     Dosage: DOSE NOT PROVIDED
     Route: 065
  7. SPASFON [Concomitant]
     Active Substance: PHLOROGLUCINOL
     Dosage: DOSE NOT PROVIDED
     Route: 065
  8. ADRIAMYCIN [Concomitant]
     Active Substance: DOXORUBICIN HYDROCHLORIDE
     Dosage: EVERY 21 DAYS
     Route: 065
  9. PENTACARINAT [Suspect]
     Active Substance: PENTAMIDINE ISETHIONATE
     Dosage: 300 MG, 1 IN 1 TOTAL
     Route: 055
     Dates: start: 20160204, end: 20160204
  10. FORLAX [Concomitant]
     Active Substance: POLYETHYLENE GLYCOL 4000
     Dosage: DOSE NOT PROVIDED
     Route: 065

REACTIONS (8)
  - Bronchospasm [Unknown]
  - Respiratory distress [Unknown]
  - Speech disorder [Unknown]
  - Disease progression [Fatal]
  - Choking sensation [Unknown]
  - General physical health deterioration [Fatal]
  - Oxygen saturation decreased [Unknown]
  - Cough [Unknown]

NARRATIVE: CASE EVENT DATE: 20160204
